FAERS Safety Report 4813925-X (Version None)
Quarter: 2005Q4

REPORT INFORMATION
  Report Type: 
  Country: None (occurrence: None)
  Receive Date: 20051028
  Receipt Date: 20040916
  Transmission Date: 20060501
  Serious: No
  Sender: FDA-Public Use
  Company Number: US-GLAXOSMITHKLINE-A0526006A

PATIENT
  Age: 80 Year
  Sex: Male

DRUGS (3)
  1. SEREVENT [Suspect]
     Indication: CHRONIC OBSTRUCTIVE PULMONARY DISEASE
     Dosage: 1PUFF TWICE PER DAY
     Route: 055
     Dates: start: 20040910
  2. IBUPROFEN [Concomitant]
  3. OXYGEN [Concomitant]

REACTIONS (2)
  - FLUID RETENTION [None]
  - MICTURITION FREQUENCY DECREASED [None]
